FAERS Safety Report 14913456 (Version 1)
Quarter: 2018Q2

REPORT INFORMATION
  Report Type: Spontaneous
  Country: CA (occurrence: CA)
  Receive Date: 20180518
  Receipt Date: 20180518
  Transmission Date: 20180711
  Serious: Yes (Other)
  Sender: FDA-Public Use
  Company Number: CA-APOTEX-2018AP013889

PATIENT
  Age: 39 Year
  Sex: Male

DRUGS (2)
  1. ALPRAZOLAM. [Suspect]
     Active Substance: ALPRAZOLAM
     Indication: PRODUCT USED FOR UNKNOWN INDICATION
     Dosage: 4 MG, QD
     Route: 065
  2. ALPRAZOLAM. [Suspect]
     Active Substance: ALPRAZOLAM
     Dosage: 2 MG, UNK
     Route: 065

REACTIONS (10)
  - Vagus nerve disorder [Unknown]
  - Cerebellar ataxia [Unknown]
  - Tremor [Unknown]
  - Motor dysfunction [Unknown]
  - Physical assault [Unknown]
  - Hallucinations, mixed [Unknown]
  - Paramnesia [Recovered/Resolved]
  - Glossopharyngeal nerve disorder [Unknown]
  - Drug withdrawal syndrome [Unknown]
  - Hyporeflexia [Unknown]
